FAERS Safety Report 5253931-7 (Version None)
Quarter: 2007Q1

REPORT INFORMATION
  Report Type: 
  Country: None (occurrence: None)
  Receive Date: 20070228
  Receipt Date: 20070228
  Transmission Date: 20070707
  Serious: Yes (Hospitalization)
  Sender: FDA-Public Use
  Company Number: None

PATIENT
  Age: 63 Year
  Sex: Male
  Weight: 101 kg

DRUGS (2)
  1. ETODOLAC [Suspect]
     Indication: PAIN
     Dosage: TAKE ONE TABLET  QD PO
     Route: 048
  2. CITALOPRAM HYDROBROMIDE  40MG TAB [Suspect]
     Indication: DEPRESSION
     Dosage: TAKE ONE TABLET  QD PO
     Route: 048

REACTIONS (5)
  - GASTROINTESTINAL EROSION [None]
  - GASTROINTESTINAL ULCER [None]
  - HAEMATOCRIT DECREASED [None]
  - HAEMOGLOBIN DECREASED [None]
  - RECTAL HAEMORRHAGE [None]
